FAERS Safety Report 8759980 (Version 1)
Quarter: 2012Q4

REPORT INFORMATION
  Report Type: 
  Country: JP (occurrence: JP)
  Receive Date: 20120829
  Receipt Date: 20120829
  Transmission Date: 20130627
  Serious: Yes (Other)
  Sender: FDA-Public Use
  Company Number: JP-B.I. PHARMACEUTICALS,INC./RIDGEFIELD-2012-BP-19017NB

PATIENT
  Age: 72 Year
  Sex: Female

DRUGS (3)
  1. TRAZENTA [Suspect]
     Indication: DIABETES MELLITUS
     Dosage: 5 mg
     Route: 048
  2. TS-1 [Concomitant]
     Indication: RECTAL CANCER
     Route: 048
  3. AVASTIN [Concomitant]
     Indication: RECTAL CANCER
     Route: 042

REACTIONS (2)
  - Electrocardiogram QT prolonged [Recovered/Resolved]
  - Dehydration [Unknown]
